FAERS Safety Report 4933981-8 (Version None)
Quarter: 2006Q1

REPORT INFORMATION
  Report Type: 
  Country: None (occurrence: None)
  Receive Date: 20060303
  Receipt Date: 20060220
  Transmission Date: 20060701
  Serious: Yes (Other)
  Sender: FDA-Public Use
  Company Number: 2006026065

PATIENT
  Age: 65 Year
  Sex: Female

DRUGS (2)
  1. AROMASIN [Suspect]
     Indication: BREAST CANCER FEMALE
     Dosage: ORAL
     Route: 048
  2. . [Concomitant]

REACTIONS (2)
  - FEELING ABNORMAL [None]
  - OESOPHAGEAL STENOSIS [None]
